FAERS Safety Report 8699026 (Version 2)
Quarter: 2014Q3

REPORT INFORMATION
  Report Type: Spontaneous
  Country: US (occurrence: US)
  Receive Date: 20120802
  Receipt Date: 20140824
  Transmission Date: 20150326
  Serious: Yes (Hospitalization, Other)
  Sender: FDA-Public Use
  Company Number: US-009507513-2010SP025088

PATIENT
  Sex: Female
  Weight: 95.26 kg

DRUGS (3)
  1. IBUPROFEN. [Concomitant]
     Active Substance: IBUPROFEN
     Indication: ANALGESIC THERAPY
     Dosage: 2-3 TIMES PER MONTH (ROUTE NOT PROVIDED AND ^RECOMMENDED DOSAGE ON BOX^); ALSO REPORTED AS 4X/WK
     Route: 065
  2. NAPROXEN. [Concomitant]
     Active Substance: NAPROXEN
  3. NUVARING [Suspect]
     Active Substance: ETHINYL ESTRADIOL\ETONOGESTREL
     Indication: CONTRACEPTION
     Dates: start: 20060522, end: 200804

REACTIONS (4)
  - Anxiety [Not Recovered/Not Resolved]
  - Pulmonary embolism [Unknown]
  - Deep vein thrombosis [Recovered/Resolved]
  - Ligament sprain [Unknown]

NARRATIVE: CASE EVENT DATE: 20080411
